FAERS Safety Report 4784426-2 (Version None)
Quarter: 2005Q3

REPORT INFORMATION
  Report Type: 
  Country: None (occurrence: None)
  Receive Date: 20050928
  Receipt Date: 20050914
  Transmission Date: 20060218
  Serious: Yes (Hospitalization)
  Sender: FDA-Public Use
  Company Number: US_0402100946

PATIENT
  Age: 41 Year
  Sex: Female
  Weight: 78 kg

DRUGS (13)
  1. HUMATROPE [Suspect]
     Indication: GROWTH HORMONE DEFICIENCY
     Dosage: 0.2 MG/1 DAY
     Dates: start: 19990601
  2. SYNTHROID [Concomitant]
  3. CORTEF [Concomitant]
  4. MULTIVITMAIN [Concomitant]
  5. DDAVP [Concomitant]
  6. OMEPRAZOLE [Concomitant]
  7. CLARITIN [Concomitant]
  8. ST JOHN'S WORT [Concomitant]
  9. GINKGO BILOBA [Concomitant]
  10. VITAMIN E [Concomitant]
  11. ULTRAM [Concomitant]
  12. CALCIUM GLUCONATE [Concomitant]
  13. EFFEXOR [Concomitant]

REACTIONS (6)
  - AREFLEXIA [None]
  - BLOOD PRESSURE SYSTOLIC INCREASED [None]
  - FEELING ABNORMAL [None]
  - MENINGIOMA [None]
  - NEOPLASM PROGRESSION [None]
  - OPTIC ATROPHY [None]
